FAERS Safety Report 8275757-2 (Version None)
Quarter: 2012Q2

REPORT INFORMATION
  Report Type: 
  Country: None (occurrence: None)
  Receive Date: 20120410
  Receipt Date: 20120410
  Transmission Date: 20120825
  Serious: No
  Sender: FDA-Public Use
  Company Number: None

PATIENT
  Age: 65 Year
  Sex: Male
  Weight: 69.5 kg

DRUGS (1)
  1. FLUOCINONIDE [Suspect]
     Indication: PHOTOSENSITIVITY REACTION
     Dates: start: 20100604, end: 20111007

REACTIONS (2)
  - EYE SWELLING [None]
  - DERMATITIS ALLERGIC [None]
